FAERS Safety Report 9587599 (Version 1)
Quarter: 2013Q4

REPORT INFORMATION
  Report Type: Spontaneous
  Country: DE (occurrence: DE)
  Receive Date: 20131003
  Receipt Date: 20131003
  Transmission Date: 20140711
  Serious: Yes (Life-Threatening, Hospitalization)
  Sender: FDA-Public Use
  Company Number: DE-ABBVIE-13P-062-1153549-00

PATIENT
  Sex: Male

DRUGS (2)
  1. HUMIRA [Suspect]
     Indication: CROHN^S DISEASE
     Route: 058
     Dates: start: 20120110, end: 20130806
  2. CORTISONE [Concomitant]
     Indication: PRODUCT USED FOR UNKNOWN INDICATION

REACTIONS (8)
  - Wound dehiscence [Recovering/Resolving]
  - Sepsis [Recovering/Resolving]
  - Fistula [Recovering/Resolving]
  - Pain [Recovering/Resolving]
  - Intestinal stenosis [Recovering/Resolving]
  - Nosocomial infection [Recovering/Resolving]
  - Peritonitis [Recovering/Resolving]
  - Weight decreased [Recovering/Resolving]
